FAERS Safety Report 10416086 (Version 1)
Quarter: 2014Q2

REPORT INFORMATION
  Report Type: Spontaneous
  Country: US (occurrence: None)
  Receive Date: 20140604
  Receipt Date: 20140604
  Transmission Date: 20141212
  Serious: Yes (Hospitalization)
  Sender: FDA-Public Use
  Company Number: 163-POMAL-14035077

PATIENT
  Age: 47 Year
  Sex: Male
  Weight: 61.7 kg

DRUGS (4)
  1. POMALYST (POMALIDOMIDE) (4 MILLIGRAM, CAPSULES) [Suspect]
     Indication: PLASMA CELL MYELOMA
     Route: 048
     Dates: start: 20131106
  2. VITAMIN C (ASCORBIC ACID) [Concomitant]
  3. ENSURE [Concomitant]
  4. ARANESP (DARBEPOETIN ALFA) [Concomitant]

REACTIONS (3)
  - Plasmacytoma [None]
  - Weight decreased [None]
  - Drug ineffective [None]
